FAERS Safety Report 20212254 (Version 4)
Quarter: 2022Q1

REPORT INFORMATION
  Report Type: Report from Study
  Country: CA (occurrence: CA)
  Receive Date: 20211221
  Receipt Date: 20220112
  Transmission Date: 20220423
  Serious: Yes (Hospitalization)
  Sender: FDA-Public Use
  Company Number: CA-FEDR-MF-001-2071001-20210624-0002SG

PATIENT
  Age: 77 Year
  Sex: Female
  Weight: 58 kg

DRUGS (21)
  1. FEDRATINIB [Suspect]
     Active Substance: FEDRATINIB
     Indication: Myelofibrosis
     Dosage: 400 MG X 1 X 1 DAYS
     Route: 048
     Dates: start: 20210526, end: 20210623
  2. ACETAMINOPHEN [Concomitant]
     Active Substance: ACETAMINOPHEN
     Indication: Osteoarthritis
     Dosage: 500 MG X PRN
     Route: 048
     Dates: start: 2001
  3. HYDROCORTISONE [Concomitant]
     Active Substance: HYDROCORTISONE
     Indication: Pruritus
     Dosage: 1 APPLICATION X 3 X 1 DAYS
     Route: 061
     Dates: start: 2019, end: 202108
  4. HYDROCORTISONE [Concomitant]
     Active Substance: HYDROCORTISONE
     Indication: Pruritus
  5. LEVOTHYROXINE [Concomitant]
     Active Substance: LEVOTHYROXINE
     Indication: Hypothyroidism
     Dosage: 200 UG X 1 X 1 DAYS
     Route: 048
     Dates: start: 2015, end: 20210609
  6. LEVOTHYROXINE [Concomitant]
     Active Substance: LEVOTHYROXINE
     Dosage: 50 MCG WEEKDAYS / 112 MCG WEEKEND DAYS UG X 1 X 1 DAYS
     Route: 048
     Dates: start: 20210528
  7. LOPERAMIDE [Concomitant]
     Active Substance: LOPERAMIDE
     Indication: Diarrhoea
     Dosage: 10 MG X PRN
     Route: 048
     Dates: start: 2019
  8. RABEPRAZOLE [Concomitant]
     Active Substance: RABEPRAZOLE
     Indication: Gastrooesophageal reflux disease
     Dosage: 20 MG X 1 X 1 DAYS
     Route: 048
     Dates: start: 2016
  9. ASPIRIN [Concomitant]
     Active Substance: ASPIRIN
     Indication: Thrombosis prophylaxis
     Dosage: 81 MG X ONCE
     Route: 048
     Dates: start: 20210618, end: 20210623
  10. CALCIUM [Concomitant]
     Active Substance: CALCIUM
     Indication: Osteoarthritis
     Dosage: 1500 MG X 1 X 2 DAYS
     Route: 048
     Dates: start: 20210618
  11. CHOLESTYRAMINE [Concomitant]
     Active Substance: CHOLESTYRAMINE
     Indication: Prophylaxis
     Dosage: 4 G X 3 X 1 DAYS
     Route: 048
     Dates: start: 20210423, end: 202107
  12. DALTEPARIN [Concomitant]
     Active Substance: DALTEPARIN
     Indication: Thrombosis prophylaxis
     Dosage: 5000 IU X 1 X 1 DAYS
     Route: 058
     Dates: start: 20210606, end: 20210616
  13. ELECTROLYTES INTRAVENOUS [Concomitant]
     Indication: Prophylaxis
     Dosage: UNKNOWN X CONTINUOUS
     Route: 042
     Dates: start: 20210607, end: 20210618
  14. HYDROXYUREA [Concomitant]
     Active Substance: HYDROXYUREA
     Indication: Thrombocytosis
     Dosage: 2000 MG X 2 X 1 DAYS
     Route: 048
     Dates: start: 20210611, end: 20210613
  15. HYDROXYUREA [Concomitant]
     Active Substance: HYDROXYUREA
     Indication: Leukocytosis
  16. LANSOPRAZOLE [Concomitant]
     Active Substance: LANSOPRAZOLE
     Indication: Gastrooesophageal reflux prophylaxis
     Dosage: 30 MG X 2 X 1 DAYS
     Route: 048
     Dates: start: 20210618, end: 20210630
  17. MAGNESIUM IV BOLUS [Concomitant]
     Indication: Electrolyte imbalance
     Dosage: 2000 MG X CONTINUOUS
     Route: 042
     Dates: start: 20210607, end: 20210618
  18. SODIUM CHLORIDE [Concomitant]
     Active Substance: SODIUM CHLORIDE
     Indication: Supportive care
     Dosage: UNKNOWN X UNKNOWN
     Route: 065
     Dates: start: 20210623, end: 20210630
  19. OXYBUTYNIN CHLORIDE [Concomitant]
     Active Substance: OXYBUTYNIN CHLORIDE
     Indication: Pollakiuria
     Dosage: 2.5 MG X 3 X 1 DAYS
     Route: 048
     Dates: start: 20210618, end: 20210729
  20. POLYETHYLENE GLYCOL 3350 [Concomitant]
     Active Substance: POLYETHYLENE GLYCOL 3350
     Indication: Constipation prophylaxis
     Dosage: 17 G X PRN
     Route: 048
     Dates: start: 20210610, end: 202108
  21. VITAMIN D3 [Concomitant]
     Active Substance: CHOLECALCIFEROL
     Indication: Osteoarthritis
     Dosage: 2000 IU X 1 X 1 DAYS
     Route: 048
     Dates: start: 20210618

REACTIONS (1)
  - Haemorrhage intracranial [Recovered/Resolved]

NARRATIVE: CASE EVENT DATE: 20210623
